FAERS Safety Report 18665276 (Version 1)
Quarter: 2020Q4

REPORT INFORMATION
  Report Type: Spontaneous
  Country: DE (occurrence: DE)
  Receive Date: 20201225
  Receipt Date: 20201225
  Transmission Date: 20210114
  Serious: Yes (Life-Threatening)
  Sender: FDA-Public Use
  Company Number: DE-HIKMA PHARMACEUTICALS USA INC.-DE-H14001-20-05774

PATIENT
  Age: 72 Year
  Sex: Male

DRUGS (1)
  1. PARACEFAN [Suspect]
     Active Substance: CLONIDINE
     Indication: HYPERTONIA
     Route: 042
     Dates: start: 20201104

REACTIONS (4)
  - Atrioventricular block [Recovered/Resolved]
  - Shock [Recovered/Resolved]
  - Incorrect dose administered [Recovered/Resolved]
  - Medication error [Recovered/Resolved]

NARRATIVE: CASE EVENT DATE: 20201104
